FAERS Safety Report 8133269-0 (Version None)
Quarter: 2012Q1

REPORT INFORMATION
  Report Type: 
  Country: None (occurrence: None)
  Receive Date: 20120213
  Receipt Date: 20120130
  Transmission Date: 20120608
  Serious: Yes (Disabling, Other)
  Sender: FDA-Public Use
  Company Number: JP-ROCHE-GNE315528

PATIENT
  Sex: Male
  Weight: 60.064 kg

DRUGS (19)
  1. RANIBIZUMAB [Suspect]
     Dosage: 0.05 ML, UNKNOWN
     Route: 050
     Dates: start: 20100714
  2. MAGMITT [Concomitant]
     Dosage: DRUG REPORTED AS:MAGMITT KENEI
  3. RANIBIZUMAB [Suspect]
     Route: 050
     Dates: start: 20110408
  4. ASPIRIN [Concomitant]
     Indication: PRODUCT USED FOR UNKNOWN INDICATION
     Dosage: UNK
  5. CANDESARTAN CILEXETIL [Concomitant]
     Indication: PRODUCT USED FOR UNKNOWN INDICATION
     Dosage: UNK
  6. MECOBALAMIN [Concomitant]
     Indication: PRODUCT USED FOR UNKNOWN INDICATION
     Dosage: UNK
  7. RANIBIZUMAB [Suspect]
     Indication: AGE-RELATED MACULAR DEGENERATION
     Dosage: 0.05 ML, UNKNOWN
     Route: 050
     Dates: start: 20100614
  8. LOXONIN [Concomitant]
     Indication: PRODUCT USED FOR UNKNOWN INDICATION
  9. RANIBIZUMAB [Suspect]
     Route: 050
     Dates: start: 20101217
  10. LEVOFLOXACIN [Concomitant]
     Indication: PRODUCT USED FOR UNKNOWN INDICATION
     Dosage: UNK
     Dates: start: 20100601, end: 20100801
  11. WARFARIN SODIUM [Concomitant]
     Indication: PRODUCT USED FOR UNKNOWN INDICATION
     Dosage: UNK
  12. DORNER [Concomitant]
     Indication: PRODUCT USED FOR UNKNOWN INDICATION
     Dosage: UNK
  13. RANIBIZUMAB [Suspect]
     Dosage: 0.05 ML, UNKNOWN
     Route: 050
     Dates: start: 20100811
  14. AMLODIPINE [Concomitant]
     Indication: PRODUCT USED FOR UNKNOWN INDICATION
     Dosage: UNK
  15. VERTEPORFIN [Suspect]
     Indication: AGE-RELATED MACULAR DEGENERATION
     Dosage: UNK
     Route: 042
     Dates: start: 20100616, end: 20100616
  16. RANIBIZUMAB [Suspect]
     Route: 050
     Dates: start: 20110204
  17. RANIBIZUMAB [Suspect]
     Route: 050
     Dates: start: 20110610
  18. SUCRALFATE [Concomitant]
  19. MUCOSTA [Concomitant]

REACTIONS (1)
  - RETINAL PIGMENT EPITHELIAL TEAR [None]
